FAERS Safety Report 9952537 (Version 1)
Quarter: 2014Q1

REPORT INFORMATION
  Report Type: Report from Study
  Country: US (occurrence: US)
  Receive Date: 20140304
  Receipt Date: 20140304
  Transmission Date: 20141002
  Serious: No
  Sender: FDA-Public Use
  Company Number: US-ABBVIE-13P-163-1074654-00

PATIENT
  Age: 61 Year
  Sex: Female

DRUGS (14)
  1. HUMIRA [Suspect]
     Indication: CROHN^S DISEASE
     Dates: start: 20121119
  2. APRISO [Concomitant]
     Indication: CROHN^S DISEASE
     Dosage: 2 TABLETS IN THE MORNING AND EVENING
     Route: 048
  3. PROTONIX [Concomitant]
     Indication: GASTRIC DISORDER
     Route: 048
  4. URISPAS [Concomitant]
     Indication: BLADDER DISORDER
     Route: 048
  5. MORPHINE SULFATE [Concomitant]
     Indication: PAIN
     Route: 048
  6. PROZAC [Concomitant]
     Indication: NERVOUS SYSTEM DISORDER
     Route: 048
  7. CREON [Concomitant]
     Indication: CROHN^S DISEASE
     Dosage: 24,000/76,000/120,000, DAILY
     Route: 048
  8. VITAMIN D [Concomitant]
     Indication: VITAMIN SUPPLEMENTATION
     Route: 048
  9. MAGNESIUM OXIDE [Concomitant]
     Indication: PRODUCT USED FOR UNKNOWN INDICATION
     Dosage: 2 TABLETS, 4 TIMES DAILY
     Route: 048
  10. POTASSIUM CHLORIDE [Concomitant]
     Indication: BLOOD POTASSIUM DECREASED
     Route: 048
  11. GABAPENTIN [Concomitant]
     Indication: NEUROPATHY PERIPHERAL
     Route: 048
  12. CENTRUM SILVER [Concomitant]
     Indication: VITAMIN SUPPLEMENTATION
     Dosage: DAILY
     Route: 048
  13. B12 [Concomitant]
     Indication: ANAEMIA
     Dosage: MONTHLY
     Route: 030
  14. IBUPROFEN [Concomitant]
     Indication: PAIN
     Dosage: 2 TABS, TWICE DAILY

REACTIONS (1)
  - Back pain [Unknown]
